FAERS Safety Report 12950326 (Version 1)
Quarter: 2016Q4

REPORT INFORMATION
  Report Type: Report from Study
  Country: NL (occurrence: NL)
  Receive Date: 20161117
  Receipt Date: 20161117
  Transmission Date: 20170207
  Serious: Yes (Hospitalization, Other)
  Sender: FDA-Public Use
  Company Number: NL-BRISTOL-MYERS SQUIBB COMPANY-BMS-2016-095866

PATIENT
  Sex: Female

DRUGS (1)
  1. NIVOLUMAB [Suspect]
     Active Substance: NIVOLUMAB
     Indication: NON-SMALL CELL LUNG CANCER
     Dosage: UNK
     Route: 065
     Dates: start: 201507

REACTIONS (10)
  - Pruritus [Recovering/Resolving]
  - Enteritis [Recovering/Resolving]
  - Hyperthyroidism [Recovering/Resolving]
  - Nausea [Recovering/Resolving]
  - Dry eye [Recovering/Resolving]
  - Sjogren^s syndrome [Recovering/Resolving]
  - Vomiting [Recovering/Resolving]
  - Malaise [Recovering/Resolving]
  - Diarrhoea [Recovering/Resolving]
  - Dry mouth [Recovering/Resolving]
